FAERS Safety Report 7539414-X (Version None)
Quarter: 2011Q2

REPORT INFORMATION
  Report Type: 
  Country: None (occurrence: None)
  Receive Date: 20110610
  Receipt Date: 20110429
  Transmission Date: 20111010
  Serious: Yes (Other)
  Sender: FDA-Public Use
  Company Number: US-BAYER-2011-049159

PATIENT

DRUGS (1)
  1. KOGENATE FS [Suspect]

REACTIONS (1)
  - FACTOR VIII INHIBITION [None]
